FAERS Safety Report 8303596-2 (Version None)
Quarter: 2012Q2

REPORT INFORMATION
  Report Type: 
  Country: None (occurrence: None)
  Receive Date: 20120416
  Receipt Date: 20120329
  Transmission Date: 20120825
  Serious: Yes (Hospitalization)
  Sender: FDA-Public Use
  Company Number: 2012031804

PATIENT
  Age: 40 Year
  Sex: Male

DRUGS (5)
  1. PRIVIGEN [Suspect]
     Indication: MYASTHENIA GRAVIS
     Dosage: 100 G TOTAL
     Route: 042
     Dates: start: 20120315
  2. TYLENOL WITH CODEINE (PANADEINE CO) [Concomitant]
  3. PREDNISONE TAB [Concomitant]
  4. ROBAXACET (ROBAXISAL COMPUESTO) [Concomitant]
  5. LOTEPREDNOL (LOTEPREDNOL) [Concomitant]

REACTIONS (15)
  - PHONOPHOBIA [None]
  - HAEMOGLOBIN DECREASED [None]
  - MENINGITIS BACTERIAL [None]
  - NECK PAIN [None]
  - VOMITING [None]
  - FEELING OF BODY TEMPERATURE CHANGE [None]
  - CHILLS [None]
  - MENINGISM [None]
  - INTRACRANIAL PRESSURE INCREASED [None]
  - OFF LABEL USE [None]
  - HAEMOLYSIS [None]
  - HEADACHE [None]
  - COUGH [None]
  - PAIN [None]
  - NAUSEA [None]
